FAERS Safety Report 14292727 (Version 2)
Quarter: 2018Q1

REPORT INFORMATION
  Report Type: Report from Study
  Country: JP (occurrence: JP)
  Receive Date: 20171215
  Receipt Date: 20180307
  Transmission Date: 20180509
  Serious: Yes (Hospitalization)
  Sender: FDA-Public Use
  Company Number: JP-VIFOR (INTERNATIONAL) INC.-VIT-2017-13842

PATIENT
  Age: 81 Year
  Sex: Male
  Weight: 65.3 kg

DRUGS (86)
  1. WARFARIN POTASSIUM [Concomitant]
     Active Substance: WARFARIN POTASSIUM
     Route: 048
     Dates: start: 20160804, end: 20160831
  2. WARFARIN POTASSIUM [Concomitant]
     Active Substance: WARFARIN POTASSIUM
     Route: 048
     Dates: start: 20170309, end: 20170315
  3. NESP [Concomitant]
     Active Substance: DARBEPOETIN ALFA
     Dates: end: 20170111
  4. NESP [Concomitant]
     Active Substance: DARBEPOETIN ALFA
     Dates: start: 20170325, end: 20170405
  5. EFFORTIL [Concomitant]
     Active Substance: ETILEFRINE HYDROCHLORIDE
     Dosage: 10-30 MG PER WEEK APPROPRIATE AMOUNT
  6. FESIN [Concomitant]
     Active Substance: IRON SUCROSE
     Dates: start: 20160723, end: 20160910
  7. EMLA [Concomitant]
     Active Substance: LIDOCAINE\PRILOCAINE
     Indication: PAIN
     Dates: start: 20170413
  8. CARTARETIN [Concomitant]
     Active Substance: CALCIUM CARBONATE
     Indication: HYPERPHOSPHATAEMIA
     Route: 048
     Dates: end: 20161103
  9. TAURINE [Concomitant]
     Active Substance: TAURINE
     Route: 048
  10. HIRUDOID [Concomitant]
     Active Substance: GLYCOSAMINOGLYCANS
     Dates: end: 20161112
  11. WARFARIN POTASSIUM [Concomitant]
     Active Substance: WARFARIN POTASSIUM
     Route: 048
     Dates: start: 20161101, end: 20161102
  12. WARFARIN POTASSIUM [Concomitant]
     Active Substance: WARFARIN POTASSIUM
     Route: 048
     Dates: start: 20161110, end: 20161116
  13. WARFARIN POTASSIUM [Concomitant]
     Active Substance: WARFARIN POTASSIUM
     Route: 048
     Dates: start: 20161117
  14. WARFARIN POTASSIUM [Concomitant]
     Active Substance: WARFARIN POTASSIUM
     Route: 048
     Dates: start: 20161208, end: 20161214
  15. WARFARIN POTASSIUM [Concomitant]
     Active Substance: WARFARIN POTASSIUM
     Dosage: 1.75 MG TO 2.0 MG ALTERNATELY
     Route: 048
     Dates: start: 20170209, end: 20170222
  16. WARFARIN POTASSIUM [Concomitant]
     Active Substance: WARFARIN POTASSIUM
     Dosage: 1.75 MG TO 2.0 MG ALTERNATELY
     Route: 048
     Dates: start: 20170413, end: 20170419
  17. NESP [Concomitant]
     Active Substance: DARBEPOETIN ALFA
     Dates: start: 20170223, end: 20170324
  18. METHYCOBAL [Concomitant]
     Active Substance: METHYLCOBALAMIN
     Route: 048
     Dates: start: 20170523
  19. PARIET [Concomitant]
     Active Substance: RABEPRAZOLE SODIUM
     Indication: PROPHYLAXIS
     Route: 048
     Dates: end: 20161001
  20. MIYA-BM [Concomitant]
     Active Substance: CLOSTRIDIUM BUTYRICUM SPORES STRAIN M-55
     Route: 048
  21. WARFARIN POTASSIUM [Concomitant]
     Active Substance: WARFARIN POTASSIUM
     Route: 048
     Dates: start: 20160901, end: 20160907
  22. WARFARIN POTASSIUM [Concomitant]
     Active Substance: WARFARIN POTASSIUM
     Dosage: 1.5 MG TO 1.75 MG ALTERNATELY
     Route: 048
     Dates: start: 20170302, end: 20170308
  23. WARFARIN POTASSIUM [Concomitant]
     Active Substance: WARFARIN POTASSIUM
     Route: 048
     Dates: start: 20170323, end: 20170329
  24. ZYLORIC [Concomitant]
     Active Substance: ALLOPURINOL
     Route: 048
     Dates: start: 20170425
  25. FEBURIC [Concomitant]
     Active Substance: FEBUXOSTAT
     Route: 048
     Dates: start: 20170328, end: 20170424
  26. FOSRENOL [Concomitant]
     Active Substance: LANTHANUM CARBONATE
     Indication: HYPERPHOSPHATAEMIA
     Route: 048
  27. CARTARETIN [Concomitant]
     Active Substance: CALCIUM CARBONATE
     Route: 048
     Dates: start: 20171129
  28. DEPAS [Concomitant]
     Active Substance: ETIZOLAM
     Route: 048
     Dates: end: 20161001
  29. LOXONIN [Concomitant]
     Active Substance: LOXOPROFEN SODIUM
  30. REBAMIPIDE [Concomitant]
     Active Substance: REBAMIPIDE
     Route: 048
     Dates: end: 20160924
  31. WARFARIN POTASSIUM [Concomitant]
     Active Substance: WARFARIN POTASSIUM
     Route: 048
     Dates: start: 20160929, end: 20161001
  32. WARFARIN POTASSIUM [Concomitant]
     Active Substance: WARFARIN POTASSIUM
     Route: 048
     Dates: start: 20170202, end: 20170208
  33. DOPS [Concomitant]
     Active Substance: DROXIDOPA
     Route: 048
     Dates: start: 20160927, end: 20161001
  34. ZYLORIC [Concomitant]
     Active Substance: ALLOPURINOL
     Route: 048
     Dates: start: 20161101
  35. TSUMURA HOCHUEKKITO [Concomitant]
     Route: 048
     Dates: start: 20161101
  36. HALCION [Concomitant]
     Active Substance: TRIAZOLAM
     Route: 048
     Dates: start: 20161101
  37. NESP [Concomitant]
     Active Substance: DARBEPOETIN ALFA
     Dates: start: 20170210, end: 20170222
  38. NESP [Concomitant]
     Active Substance: DARBEPOETIN ALFA
     Dates: start: 20170406, end: 20170517
  39. VELPHORO [Suspect]
     Active Substance: FERRIC OXYHYDROXIDE
     Route: 048
     Dates: start: 20161116, end: 20170828
  40. DEPAS [Concomitant]
     Active Substance: ETIZOLAM
     Route: 048
     Dates: start: 20161101
  41. TSUMURA SHAKUYAKUKANZOTO [Concomitant]
     Active Substance: HERBALS
     Route: 048
  42. REBAMIPIDE [Concomitant]
     Active Substance: REBAMIPIDE
     Route: 048
     Dates: start: 20170627
  43. WARFARIN POTASSIUM [Concomitant]
     Active Substance: WARFARIN POTASSIUM
     Route: 048
     Dates: start: 20170223, end: 20170301
  44. WARFARIN POTASSIUM [Concomitant]
     Active Substance: WARFARIN POTASSIUM
     Dosage: 1.25 MG TO 1.5 MG ALTERNATELY
     Route: 048
     Dates: start: 20170316, end: 20170322
  45. WARFARIN POTASSIUM [Concomitant]
     Active Substance: WARFARIN POTASSIUM
     Route: 048
     Dates: start: 20170420, end: 20170602
  46. ZYLORIC [Concomitant]
     Active Substance: ALLOPURINOL
     Route: 048
     Dates: end: 20170327
  47. SELECTOL [Concomitant]
     Active Substance: CELIPROLOL
     Route: 048
     Dates: start: 20161101
  48. VOLTAREN [Concomitant]
     Active Substance: DICLOFENAC SODIUM
  49. ACETYLSALICYLIC ACID [Concomitant]
     Active Substance: ASPIRIN
     Route: 048
     Dates: end: 20161001
  50. WARFARIN POTASSIUM [Concomitant]
     Active Substance: WARFARIN POTASSIUM
     Route: 048
     Dates: start: 20160908, end: 20160928
  51. WARFARIN POTASSIUM [Concomitant]
     Active Substance: WARFARIN POTASSIUM
     Route: 048
     Dates: start: 20161103, end: 20161109
  52. WARFARIN POTASSIUM [Concomitant]
     Active Substance: WARFARIN POTASSIUM
     Dosage: 1.75 MG TO 2.0 MG ALTERNATELY
     Route: 048
     Dates: start: 20161229, end: 20170109
  53. WARFARIN POTASSIUM [Concomitant]
     Active Substance: WARFARIN POTASSIUM
     Route: 048
     Dates: start: 20170110, end: 20170111
  54. WARFARIN POTASSIUM [Concomitant]
     Active Substance: WARFARIN POTASSIUM
     Dosage: 1.5 MG TO 1.75 MG ALTERNATELY
     Route: 048
     Dates: start: 20170112, end: 20170201
  55. WARFARIN POTASSIUM [Concomitant]
     Active Substance: WARFARIN POTASSIUM
     Route: 048
     Dates: start: 20170406, end: 20170412
  56. WARFARIN POTASSIUM [Concomitant]
     Active Substance: WARFARIN POTASSIUM
     Route: 048
     Dates: start: 20170615, end: 20170621
  57. WARFARIN POTASSIUM [Concomitant]
     Active Substance: WARFARIN POTASSIUM
     Route: 048
     Dates: start: 20170708, end: 20170712
  58. WARFARIN POTASSIUM [Concomitant]
     Active Substance: WARFARIN POTASSIUM
     Dosage: 2.0 MG TO 2.25 MG ALTERNATELY
     Route: 048
     Dates: start: 20170713, end: 20170802
  59. WARFARIN POTASSIUM [Concomitant]
     Active Substance: WARFARIN POTASSIUM
     Route: 048
     Dates: start: 20170803, end: 20170809
  60. WARFARIN POTASSIUM [Concomitant]
     Active Substance: WARFARIN POTASSIUM
     Dosage: 1.75 MG TO 2.0 MG ALTERNATELY
     Route: 048
     Dates: start: 20170810
  61. EURODIN [Concomitant]
     Route: 048
     Dates: start: 20161001, end: 20161001
  62. NESP [Concomitant]
     Active Substance: DARBEPOETIN ALFA
     Dates: start: 20170112, end: 20170209
  63. MINOFIT [Concomitant]
     Active Substance: CYSTEINE\GLYCINE\GLYCYRRHIZIN
  64. NERIPROCT [Concomitant]
     Active Substance: DIFLUCORTOLONE VALERATE\LIDOCAINE
  65. VELPHORO [Suspect]
     Active Substance: FERRIC OXYHYDROXIDE
     Indication: HYPERPHOSPHATAEMIA
     Route: 048
     Dates: start: 20160824, end: 20161115
  66. WARFARIN POTASSIUM [Concomitant]
     Active Substance: WARFARIN POTASSIUM
     Route: 048
     Dates: start: 20161215, end: 20161221
  67. WARFARIN POTASSIUM [Concomitant]
     Active Substance: WARFARIN POTASSIUM
     Dosage: 1.5 MG TO 1.75 MG ALTERNATELY
     Route: 048
     Dates: start: 20170330, end: 20170405
  68. WARFARIN POTASSIUM [Concomitant]
     Active Substance: WARFARIN POTASSIUM
     Dosage: 2.0 MG TO 2.25 MG ALTERNATELY
     Route: 048
     Dates: start: 20170603, end: 20170614
  69. WARFARIN POTASSIUM [Concomitant]
     Active Substance: WARFARIN POTASSIUM
     Dosage: 1.75 MG TO 2.0 MG ALTERNATELY
     Route: 048
     Dates: start: 20170622, end: 20170707
  70. AMEZINIUM METILSULFATE [Concomitant]
     Active Substance: AMEZINIUM METILSULFATE
     Route: 048
     Dates: start: 20160927, end: 20161001
  71. ANTEBATE [Concomitant]
     Active Substance: BETAMETHASONE DIPROPIONATE
     Dates: start: 20161115
  72. NESP [Concomitant]
     Active Substance: DARBEPOETIN ALFA
     Dates: start: 20170720
  73. EICOSAPENTAENOIC ACID ETHYL ESTER [Concomitant]
     Active Substance: ICOSAPENT ETHYL
     Route: 048
     Dates: start: 20170228
  74. ATORVASTATIN CALCIUM. [Concomitant]
     Active Substance: ATORVASTATIN CALCIUM
     Route: 048
     Dates: start: 20170425
  75. ZOLPIDEM TARTRATE. [Concomitant]
     Active Substance: ZOLPIDEM TARTRATE
     Route: 048
     Dates: start: 20170701, end: 20170703
  76. VELPHORO [Suspect]
     Active Substance: FERRIC OXYHYDROXIDE
     Route: 048
     Dates: start: 20170829
  77. LOXONIN [Concomitant]
     Active Substance: LOXOPROFEN SODIUM
     Route: 048
  78. CALONAL [Concomitant]
     Active Substance: ACETAMINOPHEN
     Route: 048
     Dates: end: 20160924
  79. PLAVIX [Concomitant]
     Active Substance: CLOPIDOGREL BISULFATE
     Route: 048
  80. WARFARIN POTASSIUM [Concomitant]
     Active Substance: WARFARIN POTASSIUM
     Route: 048
     Dates: end: 20161207
  81. WARFARIN POTASSIUM [Concomitant]
     Active Substance: WARFARIN POTASSIUM
     Route: 048
     Dates: start: 20161222, end: 20161228
  82. GASTER [Concomitant]
     Active Substance: FAMOTIDINE
     Indication: PROPHYLAXIS
     Route: 048
     Dates: start: 20161101
  83. NESP [Concomitant]
     Active Substance: DARBEPOETIN ALFA
     Dates: end: 20160917
  84. NESP [Concomitant]
     Active Substance: DARBEPOETIN ALFA
     Dates: start: 20160924
  85. NESP [Concomitant]
     Active Substance: DARBEPOETIN ALFA
     Dates: start: 20170518, end: 20170719
  86. RESTAMIN KOWA [Concomitant]
     Route: 048
     Dates: start: 20170622

REACTIONS (4)
  - Blood pressure increased [Recovered/Resolved]
  - Abdominal pain upper [Recovered/Resolved]
  - Nausea [Recovered/Resolved]
  - Cardiac failure congestive [Recovered/Resolved]

NARRATIVE: CASE EVENT DATE: 20161110
